FAERS Safety Report 7599550-9 (Version None)
Quarter: 2011Q3

REPORT INFORMATION
  Report Type: 
  Country: None (occurrence: None)
  Receive Date: 20110711
  Receipt Date: 20080623
  Transmission Date: 20111222
  Serious: No
  Sender: FDA-Public Use
  Company Number: 2008BI016270

PATIENT
  Age: 55 Year
  Sex: Female

DRUGS (1)
  1. TYSABRI [Suspect]
     Indication: MULTIPLE SCLEROSIS
     Route: 042
     Dates: start: 20080515

REACTIONS (9)
  - EYE PRURITUS [None]
  - EYE SWELLING [None]
  - DRY EYE [None]
  - EYE IRRITATION [None]
  - SOMNOLENCE [None]
  - FATIGUE [None]
  - INFUSION SITE HAEMATOMA [None]
  - FALL [None]
  - CATARACT [None]
